FAERS Safety Report 6184125-9 (Version None)
Quarter: 2009Q2

REPORT INFORMATION
  Report Type: 
  Country: None (occurrence: None)
  Receive Date: 20090508
  Receipt Date: 20090501
  Transmission Date: 20091009
  Serious: Yes (Hospitalization)
  Sender: FDA-Public Use
  Company Number: US-BAYER-200911312BCC

PATIENT
  Age: 60 Year
  Sex: Male

DRUGS (5)
  1. ASPIRIN [Suspect]
     Indication: DRUG USE FOR UNKNOWN INDICATION
     Dosage: TOTAL DAILY DOSE: 81 MG  UNIT DOSE: 81 MG
     Route: 048
     Dates: start: 20050101
  2. PLAVIX [Suspect]
     Indication: DRUG USE FOR UNKNOWN INDICATION
     Dosage: TOTAL DAILY DOSE: 75 MG  UNIT DOSE: 75 MG
     Route: 048
     Dates: start: 20050101
  3. METOPROLOL [Concomitant]
     Dosage: UNIT DOSE: 50 MG
     Route: 048
  4. EZETIMIBE [Concomitant]
     Dosage: UNIT DOSE: 10 MG
     Route: 048
  5. ALTACE [Concomitant]
     Dosage: UNIT DOSE: 5 MG

REACTIONS (1)
  - MALLORY-WEISS SYNDROME [None]
